FAERS Safety Report 13941655 (Version 1)
Quarter: 2017Q3

REPORT INFORMATION
  Report Type: Spontaneous
  Country: US (occurrence: US)
  Receive Date: 20170906
  Receipt Date: 20170906
  Transmission Date: 20171127
  Serious: No
  Sender: FDA-Public Use
  Company Number: US-PTC THERAPEUTICS, INC.-US-2017PTC000053

PATIENT

DRUGS (7)
  1. METHENAMINE [Concomitant]
     Active Substance: METHENAMINE
     Indication: CYSTITIS
     Dosage: 1 G, BID
     Dates: start: 2015
  2. FLUVOXAMINE [Concomitant]
     Active Substance: FLUVOXAMINE
     Indication: ANXIETY
     Dosage: 100 MG, UNK
     Dates: start: 2012
  3. ALENDRONATE [Concomitant]
     Active Substance: ALENDRONATE SODIUM
     Indication: OSTEOGENESIS IMPERFECTA
     Dosage: 35 MG, ONCE A WEEK
     Dates: start: 2014
  4. EMFLAZA [Suspect]
     Active Substance: DEFLAZACORT
     Indication: DUCHENNE MUSCULAR DYSTROPHY
     Dosage: 30 MG, QD
     Route: 048
     Dates: start: 2004, end: 2017
  5. EMFLAZA [Suspect]
     Active Substance: DEFLAZACORT
     Dosage: 60 MG, QD
     Route: 048
     Dates: start: 2017, end: 201707
  6. METOPROLOL. [Concomitant]
     Active Substance: METOPROLOL
     Indication: HYPERTENSION
     Dosage: 15 MG, UNK
     Dates: start: 2016
  7. EMFLAZA [Suspect]
     Active Substance: DEFLAZACORT
     Dosage: 45 MG, QD
     Route: 048
     Dates: start: 201707

REACTIONS (2)
  - Rash [Not Recovered/Not Resolved]
  - Erythema [Not Recovered/Not Resolved]

NARRATIVE: CASE EVENT DATE: 201705
